FAERS Safety Report 7502038-4 (Version None)
Quarter: 2011Q2

REPORT INFORMATION
  Report Type: 
  Country: None (occurrence: None)
  Receive Date: 20110523
  Receipt Date: 20110523
  Transmission Date: 20111010
  Serious: Yes (Other)
  Sender: FDA-Public Use
  Company Number: None

PATIENT
  Sex: Female

DRUGS (1)
  1. TYSABRI [Suspect]
     Dosage: 300MG Q4 WKS IV
     Route: 042
     Dates: start: 20100217

REACTIONS (1)
  - CONVULSION [None]
